FAERS Safety Report 18012661 (Version 4)
Quarter: 2020Q3

REPORT INFORMATION
  Report Type: Spontaneous
  Country: ES (occurrence: ES)
  Receive Date: 20200713
  Receipt Date: 20200921
  Transmission Date: 20201103
  Serious: Yes (Disabling, Other)
  Sender: FDA-Public Use
  Company Number: ES-MYLANLABS-2020M1063275

PATIENT
  Age: 39 Year
  Sex: Male

DRUGS (5)
  1. PROPECIA [Suspect]
     Active Substance: FINASTERIDE
     Indication: ALOPECIA
     Dosage: UNK
     Route: 048
     Dates: start: 201509, end: 202001
  2. MINOXIDIL. [Concomitant]
     Active Substance: MINOXIDIL
     Indication: ANDROGENETIC ALOPECIA
     Dosage: UNK
     Route: 065
  3. MINOXIDIL. [Concomitant]
     Active Substance: MINOXIDIL
     Dosage: UNK
     Route: 065
  4. FINASTERIDE. [Suspect]
     Active Substance: FINASTERIDE
     Indication: ANDROGENETIC ALOPECIA
     Dosage: 1 MILLIGRAM, QD, CAPSULE
     Route: 048
     Dates: start: 201509
  5. FINASTERIDE. [Suspect]
     Active Substance: FINASTERIDE
     Indication: ANDROGENETIC ALOPECIA
     Dosage: 1 MILLIGRAM, QD
     Route: 048
     Dates: start: 2015, end: 202001

REACTIONS (8)
  - Allodynia [Not Recovered/Not Resolved]
  - Ocular discomfort [Not Recovered/Not Resolved]
  - Meibomian gland dysfunction [Not Recovered/Not Resolved]
  - Lacrimal atrophy [Not Recovered/Not Resolved]
  - Alopecia [Not Recovered/Not Resolved]
  - Vision blurred [Not Recovered/Not Resolved]
  - Visual impairment [Not Recovered/Not Resolved]
  - Sexual dysfunction [Unknown]

NARRATIVE: CASE EVENT DATE: 201511
